FAERS Safety Report 9654696 (Version 4)
Quarter: 2014Q1

REPORT INFORMATION
  Report Type: Spontaneous
  Country: US (occurrence: US)
  Receive Date: 20131029
  Receipt Date: 20140205
  Transmission Date: 20141002
  Serious: Yes (Other)
  Sender: FDA-Public Use
  Company Number: US-GILEAD-2013-0086050

PATIENT
  Sex: Male

DRUGS (13)
  1. TRUVADA [Suspect]
     Indication: HIV INFECTION
     Dosage: 1 DF, QD
     Route: 048
  2. ATRIPLA [Suspect]
     Indication: HIV INFECTION
     Dosage: 2 DF, UNK
     Route: 048
     Dates: start: 201310, end: 201310
  3. ISENTRESS [Concomitant]
     Indication: HIV INFECTION
     Dosage: 400 MG, BID
     Route: 048
  4. PREZISTA [Concomitant]
     Indication: HIV INFECTION
     Dosage: 600 MG, BID
     Route: 048
  5. NORVIR [Concomitant]
     Indication: HIV INFECTION
     Dosage: 100 MG, BID
     Route: 048
  6. ACYCLOVIR                          /00587301/ [Concomitant]
     Indication: INFECTION
     Dosage: 400 MG, BID
     Route: 048
  7. IBUPROFEN [Concomitant]
     Indication: INFLAMMATORY PAIN
     Dosage: 600 MG, TID
     Route: 048
  8. HYDROCHLOROTHIAZIDE [Concomitant]
     Indication: HYPERTENSION
     Dosage: 25 MG, QD
     Route: 048
  9. SUMATRIPTAN [Concomitant]
     Indication: MIGRAINE
     Dosage: 25 MG, BID
     Route: 048
  10. ZOLPIDEM [Concomitant]
     Indication: INSOMNIA
     Dosage: 12.5 MG, QHS
     Route: 048
  11. CYMBALTA [Concomitant]
     Indication: DEPRESSION
     Dosage: 60 MG, QD
     Route: 048
  12. GABAPENTIN [Concomitant]
     Indication: NEUROPATHY PERIPHERAL
     Dosage: 300 MG, QHS
     Route: 048
  13. MAALOX                             /00082501/ [Concomitant]
     Indication: ANTACID THERAPY
     Dosage: 30 ML, BID
     Route: 048

REACTIONS (3)
  - Loss of consciousness [Unknown]
  - Dizziness [Recovered/Resolved]
  - Product formulation issue [Unknown]
